FAERS Safety Report 19386422 (Version 1)
Quarter: 2021Q2

REPORT INFORMATION
  Report Type: Spontaneous
  Country: US (occurrence: US)
  Receive Date: 20210606
  Receipt Date: 20210606
  Transmission Date: 20210717
  Serious: No
  Sender: FDA-Public Use
  Company Number: None

PATIENT
  Age: 36 Year
  Sex: Female

DRUGS (1)
  1. HUMIRA [Suspect]
     Active Substance: ADALIMUMAB
     Indication: PSORIASIS
     Dosage: OTHER DOSE:80MG/40MG;OTHER FREQUENCY:LOADING DOSE DIREC;?SQ
     Route: 058
     Dates: start: 20210519

REACTIONS (3)
  - Skin reaction [None]
  - Lymphadenopathy [None]
  - Injection site erythema [None]

NARRATIVE: CASE EVENT DATE: 20210527
